FAERS Safety Report 11749930 (Version 1)
Quarter: 2015Q4

REPORT INFORMATION
  Report Type: Spontaneous
  Country: US (occurrence: None)
  Receive Date: 20151117
  Receipt Date: 20151117
  Transmission Date: 20160304
  Serious: Yes (Disabling)
  Sender: FDA-Public Use
  Company Number: None

PATIENT
  Age: 39 Year
  Sex: Male
  Weight: 111.13 kg

DRUGS (1)
  1. QUETIAPINE FUMARATE 100MG ASTRA-ZENECA [Suspect]
     Active Substance: QUETIAPINE FUMARATE
     Indication: BIPOLAR DISORDER
     Route: 048

REACTIONS (2)
  - Nasal congestion [None]
  - Emotional distress [None]

NARRATIVE: CASE EVENT DATE: 20151116
